FAERS Safety Report 5045646-5 (Version None)
Quarter: 2006Q3

REPORT INFORMATION
  Report Type: 
  Country: None (occurrence: None)
  Receive Date: 20060707
  Receipt Date: 20060614
  Transmission Date: 20061208
  Serious: Yes (Death, Hospitalization)
  Sender: FDA-Public Use
  Company Number: JP-BOEHRINGER INGELHEIM PHARMACEUTICALS, INC.-2006-BP-06723NB

PATIENT
  Sex: Female
  Weight: 40 kg

DRUGS (7)
  1. MOBIC [Suspect]
     Indication: RHEUMATOID ARTHRITIS
     Route: 048
     Dates: start: 20050106, end: 20060601
  2. DEPAS [Concomitant]
     Indication: TENSION HEADACHE
     Route: 048
     Dates: start: 20060106, end: 20060601
  3. TERNELIN [Concomitant]
     Indication: TENSION HEADACHE
     Route: 048
     Dates: start: 20060106, end: 20060601
  4. BENZALIN [Concomitant]
     Indication: INSOMNIA
     Route: 048
     Dates: start: 20051201, end: 20060601
  5. PURSENNID (SENNOSIDE) [Concomitant]
     Indication: CONSTIPATION
     Route: 048
     Dates: start: 20051201, end: 20060601
  6. STOMACHIC [Concomitant]
     Indication: GASTRITIS
     Route: 048
     Dates: start: 20051201, end: 20060601
  7. NEUER [Concomitant]
     Indication: GASTRITIS
     Route: 048
     Dates: start: 20051201, end: 20060601

REACTIONS (5)
  - BLOOD PRESSURE DECREASED [None]
  - GASTRIC ULCER PERFORATION [None]
  - HAEMATOCHEZIA [None]
  - PERITONITIS [None]
  - VOMITING [None]
